FAERS Safety Report 20429916 (Version 1)
Quarter: 2022Q1

REPORT INFORMATION
  Report Type: Report from Study
  Country: US (occurrence: US)
  Receive Date: 20220204
  Receipt Date: 20220204
  Transmission Date: 20220423
  Serious: Yes (Life-Threatening, Hospitalization)
  Sender: FDA-Public Use
  Company Number: US-SERVIER-S19002642

PATIENT

DRUGS (54)
  1. ONCASPAR [Suspect]
     Active Substance: PEGASPARGASE
     Indication: Acute lymphocytic leukaemia
     Dosage: 2500 IU/M2, ONE DOSE
     Route: 042
     Dates: start: 20190219, end: 20190219
  2. ONCASPAR [Suspect]
     Active Substance: PEGASPARGASE
     Dosage: 2500 UNK
     Route: 042
     Dates: start: 20190820, end: 20191212
  3. DEXAMETHASONE PHOSPHATE [Suspect]
     Active Substance: DEXAMETHASONE PHOSPHATE
     Indication: Acute lymphocytic leukaemia
     Dosage: 6 MG/M2, QD, DAY 1-23
     Route: 042
     Dates: start: 20190212, end: 20190306
  4. DEXAMETHASONE PHOSPHATE [Suspect]
     Active Substance: DEXAMETHASONE PHOSPHATE
     Dosage: 18 MG/M2, QD ON DAYS 1-5
     Route: 048
     Dates: start: 20190813, end: 20190907
  5. DEXAMETHASONE PHOSPHATE [Suspect]
     Active Substance: DEXAMETHASONE PHOSPHATE
     Dosage: 18 MG/M2, QD ON DAYS 1-5
     Route: 048
     Dates: start: 20191126, end: 20191130
  6. VINCRISTINE SULFATE [Suspect]
     Active Substance: VINCRISTINE SULFATE
     Indication: Acute lymphocytic leukaemia
     Dosage: 1.5 MG/M2 ON DAYS 4,11,18
     Route: 042
     Dates: start: 20190215, end: 20190301
  7. VINCRISTINE SULFATE [Suspect]
     Active Substance: VINCRISTINE SULFATE
     Dosage: 2 MG/M2, QD DAY 1
     Route: 042
     Dates: start: 20190813, end: 20190904
  8. VINCRISTINE SULFATE [Suspect]
     Active Substance: VINCRISTINE SULFATE
     Dosage: 2 MG/M2, QD DAY 1
     Route: 042
     Dates: start: 20191126
  9. DEXRAZOXANE [Suspect]
     Active Substance: DEXRAZOXANE
     Indication: Acute lymphocytic leukaemia
     Dosage: ON DAYS 11 AND 12300 MG/M2, QD
     Route: 042
     Dates: start: 20190222, end: 20190223
  10. DEXRAZOXANE [Suspect]
     Active Substance: DEXRAZOXANE
     Dosage: 300 MG/M2, QD DAY 1
     Route: 042
     Dates: start: 20190812, end: 20190904
  11. DEXRAZOXANE [Suspect]
     Active Substance: DEXRAZOXANE
     Dosage: 300 MG/M2, QD DAY 1
     Route: 042
     Dates: start: 20191126, end: 20191126
  12. METHOTREXATE SODIUM [Suspect]
     Active Substance: METHOTREXATE SODIUM
     Indication: Acute lymphocytic leukaemia
     Dosage: 12 MG/M2, ONE DOSE
     Route: 037
     Dates: start: 20190301, end: 20190301
  13. METHOTREXATE SODIUM [Suspect]
     Active Substance: METHOTREXATE SODIUM
     Dosage: 12 MG, QD DAY 1
     Route: 037
     Dates: start: 20190812, end: 20190812
  14. METHOTREXATE SODIUM [Suspect]
     Active Substance: METHOTREXATE SODIUM
     Dosage: 12 MG, QD DAY 1
     Route: 037
     Dates: start: 20191126, end: 20191126
  15. CYTARABINE [Suspect]
     Active Substance: CYTARABINE
     Indication: Acute lymphocytic leukaemia
     Dosage: 40 MG/M2, ONE DOSE
     Route: 037
     Dates: start: 20190301, end: 20190301
  16. CYTARABINE [Suspect]
     Active Substance: CYTARABINE
     Dosage: 40 MG/M2, ONE DOSE
     Route: 037
     Dates: start: 20190812, end: 20190812
  17. CYTARABINE [Suspect]
     Active Substance: CYTARABINE
     Dosage: 40 MG/M2, ONE DOSE
     Route: 037
     Dates: start: 20191126, end: 20191126
  18. HYDROCORTISONE [Suspect]
     Active Substance: HYDROCORTISONE
     Indication: Acute lymphocytic leukaemia
     Dosage: 15 MG/M2, ONE DOSE
     Route: 037
     Dates: start: 20190301, end: 20190301
  19. HYDROCORTISONE [Suspect]
     Active Substance: HYDROCORTISONE
     Dosage: 15 MG/M2, ONE DOSE
     Route: 037
     Dates: start: 20190812, end: 20190812
  20. HYDROCORTISONE [Suspect]
     Active Substance: HYDROCORTISONE
     Dosage: 15 MG/M2, ONE DOSE
     Route: 037
     Dates: start: 20191126, end: 20191126
  21. DOXORUBICIN HYDROCHLORIDE [Suspect]
     Active Substance: DOXORUBICIN HYDROCHLORIDE
     Indication: Acute lymphocytic leukaemia
     Dosage: 30 MG/M2, ONE DOSE
     Route: 042
     Dates: start: 20190222, end: 20190223
  22. DOXORUBICIN HYDROCHLORIDE [Suspect]
     Active Substance: DOXORUBICIN HYDROCHLORIDE
     Dosage: 30 MG/M2, ONE DOSE
     Route: 042
     Dates: start: 20190812, end: 20190904
  23. DOXORUBICIN HYDROCHLORIDE [Suspect]
     Active Substance: DOXORUBICIN HYDROCHLORIDE
     Dosage: 30 MG/M2, ONE DOSE
     Route: 042
     Dates: start: 20191126, end: 20191126
  24. CYCLOPHOSPHAMIDE [Suspect]
     Active Substance: CYCLOPHOSPHAMIDE
     Indication: Acute lymphocytic leukaemia
     Dosage: 1000 MG/M2 ON DAYS 1 AND 21
     Route: 042
     Dates: start: 20190403, end: 20190423
  25. MERCAPTOPURINE [Suspect]
     Active Substance: MERCAPTOPURINE
     Indication: Acute lymphocytic leukaemia
     Dosage: 50 MG/M2 ON DAYS 1-14 AND 21
     Route: 051
     Dates: start: 20190403, end: 20190423
  26. MERCAPTOPURINE [Suspect]
     Active Substance: MERCAPTOPURINE
     Dosage: 50 MG/M2 ON DAYS 1-14 AND 21
     Route: 051
     Dates: start: 20190812, end: 20190910
  27. MERCAPTOPURINE [Suspect]
     Active Substance: MERCAPTOPURINE
     Dosage: 50 MG/M2 ON DAYS 1-14 AND 21
     Route: 051
     Dates: start: 20191126, end: 20191211
  28. TN UNSPECIFIED [Concomitant]
     Indication: Product used for unknown indication
     Dosage: UNK
     Route: 065
  29. TN UNSPECIFIED [Concomitant]
     Indication: Product used for unknown indication
     Dosage: UNK
     Route: 065
  30. TN UNSPECIFIED [Concomitant]
     Indication: Product used for unknown indication
     Dosage: UNK
     Route: 065
  31. TN UNSPECIFIED [Concomitant]
     Indication: Product used for unknown indication
     Dosage: UNK
     Route: 065
  32. TN UNSPECIFIED [Concomitant]
     Indication: Product used for unknown indication
     Dosage: UNK
     Route: 065
  33. TN UNSPECIFIED [Concomitant]
     Indication: Product used for unknown indication
     Dosage: UNK
     Route: 065
  34. TN UNSPECIFIED [Concomitant]
     Indication: Product used for unknown indication
  35. TN UNSPECIFIED [Concomitant]
     Indication: Product used for unknown indication
     Dosage: UNK
     Route: 065
  36. TN UNSPECIFIED [Concomitant]
     Indication: Product used for unknown indication
     Dosage: UNK
     Route: 065
  37. TN UNSPECIFIED [Concomitant]
     Indication: Product used for unknown indication
     Dosage: UNK
     Route: 065
  38. TN UNSPECIFIED [Concomitant]
     Indication: Product used for unknown indication
     Dosage: UNK
     Route: 065
  39. TN UNSPECIFIED [Concomitant]
     Indication: Product used for unknown indication
  40. TN UNSPECIFIED [Concomitant]
     Indication: Product used for unknown indication
     Dosage: UNK
     Route: 065
  41. TN UNSPECIFIED [Concomitant]
     Indication: Product used for unknown indication
     Dosage: UNK
     Route: 065
  42. TN UNSPECIFIED [Concomitant]
     Indication: Product used for unknown indication
     Dosage: UNK
     Route: 065
  43. TN UNSPECIFIED [Concomitant]
     Indication: Product used for unknown indication
     Dosage: UNK
     Route: 065
  44. TN UNSPECIFIED [Concomitant]
     Indication: Product used for unknown indication
     Dosage: UNK
     Route: 065
  45. TN UNSPECIFIED [Concomitant]
     Indication: Product used for unknown indication
     Dosage: UNK
     Route: 065
  46. TN UNSPECIFIED [Concomitant]
     Indication: Product used for unknown indication
     Dosage: UNK
     Route: 065
  47. TN UNSPECIFIED [Concomitant]
     Indication: Product used for unknown indication
     Dosage: UNK
     Route: 065
  48. TN UNSPECIFIED [Concomitant]
     Indication: Product used for unknown indication
     Dosage: UNK
     Route: 065
  49. TN UNSPECIFIED [Concomitant]
     Indication: Product used for unknown indication
     Dosage: UNK
     Route: 065
  50. TN UNSPECIFIED [Concomitant]
     Indication: Product used for unknown indication
     Dosage: UNK
     Route: 065
  51. TN UNSPECIFIED [Concomitant]
     Indication: Product used for unknown indication
     Dosage: UNK
     Route: 065
  52. TN UNSPECIFIED [Concomitant]
     Indication: Product used for unknown indication
     Dosage: UNK
     Route: 065
  53. TN UNSPECIFIED [Concomitant]
     Indication: Product used for unknown indication
     Dosage: UNK
     Route: 065
  54. TN UNSPECIFIED [Concomitant]
     Indication: Product used for unknown indication
     Dosage: UNK
     Route: 065

REACTIONS (7)
  - Sepsis [Recovering/Resolving]
  - Colitis [Unknown]
  - Klebsiella infection [Unknown]
  - Rhinovirus infection [Unknown]
  - Hypotension [Not Recovered/Not Resolved]
  - Febrile neutropenia [Not Recovered/Not Resolved]
  - Abdominal infection [Unknown]

NARRATIVE: CASE EVENT DATE: 20190306
